FAERS Safety Report 5312772-2 (Version None)
Quarter: 2007Q2

REPORT INFORMATION
  Report Type: 
  Country: None (occurrence: None)
  Receive Date: 20070430
  Receipt Date: 20070424
  Transmission Date: 20071010
  Serious: Yes (Death)
  Sender: FDA-Public Use
  Company Number: TR-BOEHRINGER INGELHEIM PHARMACEUTICALS, INC.-2007-DE-02383GD

PATIENT

DRUGS (2)
  1. COMBIVENT [Suspect]
     Indication: CHRONIC OBSTRUCTIVE PULMONARY DISEASE
     Dosage: 160 MCG IPRATROPIUM BROMIDE, 800 MCG SALBUTAMOL
     Route: 055
  2. METHYLXANTHINES [Suspect]

REACTIONS (1)
  - DEATH [None]
